FAERS Safety Report 20491114 (Version 1)
Quarter: 2022Q1

REPORT INFORMATION
  Report Type: Spontaneous
  Country: US (occurrence: None)
  Receive Date: 20220218
  Receipt Date: 20220218
  Transmission Date: 20220424
  Serious: Yes (Other)
  Sender: FDA-Public Use
  Company Number: None

PATIENT
  Age: 83 Year
  Sex: Male
  Weight: 90 kg

DRUGS (1)
  1. KETOROLAC [Suspect]
     Active Substance: KETOROLAC TROMETHAMINE
     Indication: Surgery
     Dosage: FREQUENCY : TWICE A DAY;?
     Route: 047
     Dates: start: 20220201, end: 20220218

REACTIONS (1)
  - Foreign body sensation in eyes [None]

NARRATIVE: CASE EVENT DATE: 20220218
